FAERS Safety Report 25385546 (Version 2)
Quarter: 2025Q2

REPORT INFORMATION
  Report Type: Spontaneous
  Country: CR (occurrence: CR)
  Receive Date: 20250602
  Receipt Date: 20250618
  Transmission Date: 20250716
  Serious: Yes (Hospitalization, Other)
  Sender: PFIZER
  Company Number: CR-PFIZER INC-PV202500056646

PATIENT
  Age: 78 Year
  Sex: Female

DRUGS (2)
  1. IBRANCE [Suspect]
     Active Substance: PALBOCICLIB
  2. ARIMIDEX [Suspect]
     Active Substance: ANASTROZOLE

REACTIONS (12)
  - Seizure [Unknown]
  - Headache [Unknown]
  - Metastasis [Unknown]
  - Pain in extremity [Unknown]
  - Muscle spasms [Unknown]
  - Cough [Unknown]
  - Decreased immune responsiveness [Unknown]
  - Blood pressure fluctuation [Unknown]
  - Blister [Recovering/Resolving]
  - Skin hypertrophy [Recovering/Resolving]
  - Dizziness [Unknown]
  - Disorientation [Unknown]

NARRATIVE: CASE EVENT DATE: 20250401
